FAERS Safety Report 8293344 (Version 6)
Quarter: 2013Q1

REPORT INFORMATION
  Report Type: Spontaneous
  Country: DE (occurrence: DE)
  Receive Date: 20111215
  Receipt Date: 20130119
  Transmission Date: 20140127
  Serious: Yes (Other)
  Sender: FDA-Public Use
  Company Number: DE-AMGEN-DEUSP2011066774

PATIENT
  Age: 7 Year
  Sex: Male
  Weight: 30 kg

DRUGS (2)
  1. NPLATE [Suspect]
     Indication: WISKOTT-ALDRICH SYNDROME
     Dosage: 10 MUG/KG, QWK
     Route: 058
     Dates: start: 20101201
  2. IRON [Concomitant]
     Indication: PRODUCT USED FOR UNKNOWN INDICATION
     Dosage: UNK UNK, PRN

REACTIONS (2)
  - Therapeutic response decreased [Not Recovered/Not Resolved]
  - Neutralising antibodies [Unknown]
